FAERS Safety Report 5529492-1 (Version None)
Quarter: 2007Q4

REPORT INFORMATION
  Report Type: 
  Country: None (occurrence: None)
  Receive Date: 20071129
  Receipt Date: 20071119
  Transmission Date: 20080405
  Serious: Yes (Hospitalization)
  Sender: FDA-Public Use
  Company Number: FR-ABBOTT-07P-056-0425113-00

PATIENT
  Sex: Male

DRUGS (5)
  1. DEPAKOTE [Suspect]
     Indication: BIPOLAR I DISORDER
     Route: 048
     Dates: start: 20070515, end: 20070519
  2. DEPAKOTE [Suspect]
     Route: 048
     Dates: end: 20070514
  3. DEPAKOTE [Suspect]
     Route: 048
     Dates: start: 20070515, end: 20070519
  4. CYAMEMAZINE [Concomitant]
     Indication: BIPOLAR I DISORDER
     Route: 048
  5. TIAPRIDE [Concomitant]
     Indication: BIPOLAR I DISORDER
     Route: 048

REACTIONS (2)
  - DERMATITIS BULLOUS [None]
  - THROMBOCYTOPENIC PURPURA [None]
